FAERS Safety Report 10141326 (Version 1)
Quarter: 2014Q2

REPORT INFORMATION
  Report Type: Spontaneous
  Country: US (occurrence: US)
  Receive Date: 20140429
  Receipt Date: 20140429
  Transmission Date: 20141212
  Serious: Yes (Hospitalization)
  Sender: FDA-Public Use
  Company Number: US-ELI_LILLY_AND_COMPANY-US201404006700

PATIENT
  Sex: Female

DRUGS (7)
  1. HUMALOG LISPRO [Suspect]
     Indication: TYPE 1 DIABETES MELLITUS
     Dosage: UNK
     Route: 065
  2. LEVEMIR [Concomitant]
  3. METFORMIN [Concomitant]
     Dosage: 500 MG, BID
  4. LISINOPRIL [Concomitant]
     Dosage: 50 MG, UNKNOWN
  5. COREG [Concomitant]
  6. LEVOTHYROXINE [Concomitant]
     Dosage: 100 MG, UNKNOWN
  7. GABAPENTIN [Concomitant]

REACTIONS (1)
  - Intervertebral disc protrusion [Not Recovered/Not Resolved]
